FAERS Safety Report 14797718 (Version 1)
Quarter: 2018Q2

REPORT INFORMATION
  Report Type: Report from Study
  Country: JP (occurrence: JP)
  Receive Date: 20180424
  Receipt Date: 20180424
  Transmission Date: 20180711
  Serious: Yes (Other)
  Sender: FDA-Public Use
  Company Number: JP-ACCORD-065969

PATIENT

DRUGS (3)
  1. FLUOROURACIL. [Suspect]
     Active Substance: FLUOROURACIL
     Indication: OESOPHAGEAL SQUAMOUS CELL CARCINOMA
     Dosage: 750 MG/M2, CONTINUOUS?INTRAVENOUS INFUSION ON DAYS 1 TO 5
     Route: 042
  2. CISPLATIN. [Suspect]
     Active Substance: CISPLATIN
     Indication: OESOPHAGEAL SQUAMOUS CELL CARCINOMA
     Dosage: 70 TO 75 MG/M2, GIVEN AS A 2-HOUR, CONTINUOUS INTRAVENOUS INFUSION ON DAY 1
     Route: 042
  3. DOCETAXEL. [Suspect]
     Active Substance: DOCETAXEL
     Indication: OESOPHAGEAL SQUAMOUS CELL CARCINOMA
     Dosage: 70 TO 75 MG/M2, 1-HOUR, CONTINUOUS?INTRAVENOUS INFUSION ON DAY 1
     Route: 042

REACTIONS (1)
  - Nephropathy toxic [Unknown]
